FAERS Safety Report 15146009 (Version 1)
Quarter: 2018Q3

REPORT INFORMATION
  Report Type: Spontaneous
  Country: FR (occurrence: FR)
  Receive Date: 20180714
  Receipt Date: 20180714
  Transmission Date: 20181010
  Serious: Yes (Hospitalization)
  Sender: FDA-Public Use
  Company Number: FR-TEVA-2018-FR-923085

PATIENT
  Age: 53 Year
  Sex: Male

DRUGS (2)
  1. CISPLATINE TEVA [Suspect]
     Active Substance: CISPLATIN
     Indication: TESTIS CANCER
     Dosage: 40 MILLIGRAM DAILY; (J1 TO J5)
     Route: 042
     Dates: start: 20180507, end: 20180511
  2. ETOPOSIDE TEVA [Suspect]
     Active Substance: ETOPOSIDE
     Indication: TESTIS CANCER
     Dosage: 200 MILLIGRAM DAILY; (J1 TO J5)
     Route: 042
     Dates: start: 20180507, end: 20180511

REACTIONS (2)
  - Pancytopenia [Recovering/Resolving]
  - Intestinal obstruction [Recovering/Resolving]

NARRATIVE: CASE EVENT DATE: 20180516
